FAERS Safety Report 6197207-2 (Version None)
Quarter: 2009Q2

REPORT INFORMATION
  Report Type: 
  Country: None (occurrence: None)
  Receive Date: 20090520
  Receipt Date: 20090507
  Transmission Date: 20091009
  Serious: Yes (Hospitalization)
  Sender: FDA-Public Use
  Company Number: DK-GENENTECH-283202

PATIENT
  Sex: Female

DRUGS (7)
  1. AVASTIN [Suspect]
     Indication: DRUG USE FOR UNKNOWN INDICATION
     Dosage: 725 MG, Q2W
     Route: 065
     Dates: start: 20081121, end: 20090227
  2. IRINOTECAN HCL [Suspect]
     Indication: DRUG USE FOR UNKNOWN INDICATION
     Dosage: 120 MG, UNK
     Route: 065
     Dates: start: 20081121
  3. IRINOTECAN HCL [Suspect]
     Dosage: 235 MG, Q2W
     Route: 065
     Dates: start: 20081205, end: 20090227
  4. TORISEL [Suspect]
     Indication: BRAIN NEOPLASM
     Dosage: 25 MG, 1/WEEK
     Route: 065
     Dates: start: 20090327
  5. LEVETIRACETAM [Concomitant]
     Indication: DRUG USE FOR UNKNOWN INDICATION
     Dosage: UNK
     Dates: start: 20080928
  6. GLUCOCORTICOID NOS [Concomitant]
     Indication: DRUG USE FOR UNKNOWN INDICATION
     Dosage: UNK
     Dates: start: 20090306
  7. ACETAMINOPHEN [Suspect]
     Indication: DRUG USE FOR UNKNOWN INDICATION
     Dosage: UNK
     Dates: start: 20080712

REACTIONS (1)
  - GASTRITIS [None]
